FAERS Safety Report 4913966-8 (Version None)
Quarter: 2006Q1

REPORT INFORMATION
  Report Type: 
  Country: None (occurrence: None)
  Receive Date: 20060113
  Receipt Date: 20051104
  Transmission Date: 20060701
  Serious: No
  Sender: FDA-Public Use
  Company Number: 2005SP003866

PATIENT
  Age: 36 Year
  Sex: Male
  Weight: 96.1626 kg

DRUGS (10)
  1. LUNESTA [Suspect]
     Indication: INSOMNIA
     Dosage: 3 MG;1X;ORAL
     Route: 048
     Dates: start: 20051103, end: 20051103
  2. ZOLOFT [Concomitant]
  3. AMBIEN [Concomitant]
  4. PROPRANOLOL [Concomitant]
  5. HYDROCHLORIDE [Concomitant]
  6. RELPAX [Concomitant]
  7. PERCOCET [Concomitant]
  8. ZANAFLEX [Concomitant]
  9. ATIVAN [Concomitant]
  10. TAMSULOSIN HCL [Concomitant]

REACTIONS (1)
  - DYSGEUSIA [None]
